FAERS Safety Report 5876133-X (Version None)
Quarter: 2008Q3

REPORT INFORMATION
  Report Type: 
  Country: None (occurrence: None)
  Receive Date: 20080910
  Receipt Date: 20080828
  Transmission Date: 20090109
  Serious: Yes (Hospitalization)
  Sender: FDA-Public Use
  Company Number: GB-ROCHE-259323

PATIENT
  Age: 31 Year
  Sex: Male
  Weight: 70 kg

DRUGS (5)
  1. ISOTRETINOIN [Suspect]
     Indication: ACNE
     Route: 048
     Dates: start: 20010220, end: 20010327
  2. SEPTRIN [Concomitant]
     Indication: ACNE
     Route: 048
     Dates: start: 20010201, end: 20010322
  3. DOXYCYCLINE [Concomitant]
     Indication: ACNE
     Route: 048
  4. CO-TRIMOXAZOLE [Concomitant]
     Indication: ACNE
  5. ISOTREX [Concomitant]
     Indication: ACNE
     Route: 061

REACTIONS (8)
  - ARTHRALGIA [None]
  - COUGH [None]
  - EPISTAXIS [None]
  - GUILLAIN-BARRE SYNDROME [None]
  - INFLUENZA LIKE ILLNESS [None]
  - LIP DRY [None]
  - PARAESTHESIA [None]
  - PARESIS [None]
